FAERS Safety Report 5519792-3 (Version None)
Quarter: 2007Q4

REPORT INFORMATION
  Report Type: 
  Country: None (occurrence: None)
  Receive Date: 20071116
  Receipt Date: 20070821
  Transmission Date: 20080405
  Serious: No
  Sender: FDA-Public Use
  Company Number: A0673455A

PATIENT
  Age: 79 Year
  Sex: Female

DRUGS (3)
  1. COREG CR [Suspect]
     Indication: ARRHYTHMIA
     Dosage: 20MG PER DAY
     Route: 048
     Dates: start: 20070815
  2. LEVOXYL [Concomitant]
  3. VITAMINS [Concomitant]

REACTIONS (2)
  - DIZZINESS [None]
  - SENSORY DISTURBANCE [None]
